FAERS Safety Report 4777685-3 (Version None)
Quarter: 2005Q3

REPORT INFORMATION
  Report Type: 
  Country: None (occurrence: None)
  Receive Date: 20050921
  Receipt Date: 20050906
  Transmission Date: 20060218
  Serious: Yes (Hospitalization)
  Sender: FDA-Public Use
  Company Number: USA0507101848

PATIENT
  Age: 78 Year
  Sex: Female

DRUGS (2)
  1. FORTEO [Suspect]
     Indication: OSTEOPOROSIS
     Dates: start: 20050512
  2. CALCIUM GLUCONATE [Concomitant]

REACTIONS (12)
  - CATARACT [None]
  - CHOLELITHIASIS [None]
  - CONDITION AGGRAVATED [None]
  - CYSTITIS [None]
  - DRUG DOSE OMISSION [None]
  - DRUG INEFFECTIVE [None]
  - GLOSSODYNIA [None]
  - LIP PAIN [None]
  - ORAL DISCOMFORT [None]
  - PHARMACEUTICAL PRODUCT COMPLAINT [None]
  - SWELLING FACE [None]
  - TREATMENT NONCOMPLIANCE [None]
